FAERS Safety Report 9287611 (Version 2)
Quarter: 2013Q2

REPORT INFORMATION
  Report Type: Spontaneous
  Country: US (occurrence: US)
  Receive Date: 20130514
  Receipt Date: 20130605
  Transmission Date: 20140414
  Serious: Yes (Hospitalization, Other)
  Sender: FDA-Public Use
  Company Number: US-AMGEN-USASP2013033026

PATIENT
  Age: 75 Year
  Sex: Female
  Weight: 57.14 kg

DRUGS (6)
  1. PROLIA [Suspect]
     Indication: OSTEOPOROSIS POSTMENOPAUSAL
     Dosage: 60 MG, Q6MO
     Route: 058
     Dates: start: 201110
  2. ATENOLOL [Concomitant]
     Dosage: 100 MG, QD
  3. LOVASTATIN [Concomitant]
     Dosage: 40 MG, QD
  4. NORVASC [Concomitant]
     Dosage: 5 MG, QD
  5. WELLBUTRIN [Concomitant]
     Dosage: 75 MG, QD
  6. PROZAC [Concomitant]
     Dosage: 40 MG, QD

REACTIONS (3)
  - Impaired healing [Recovered/Resolved]
  - Limb injury [Recovered/Resolved]
  - Skin graft [Recovered/Resolved]
